FAERS Safety Report 9620408 (Version 1)
Quarter: 2013Q4

REPORT INFORMATION
  Report Type: Spontaneous
  Country: US (occurrence: US)
  Receive Date: 20131015
  Receipt Date: 20131015
  Transmission Date: 20140711
  Serious: No
  Sender: FDA-Public Use
  Company Number: -SAAVPROD-BMS17185463

PATIENT
  Sex: Female

DRUGS (1)
  1. AVALIDE TABS 300MG/12.5MG [Suspect]
     Dosage: 1DF= HALF OF TAB

REACTIONS (2)
  - Blood pressure increased [Unknown]
  - Medication error [Unknown]
